FAERS Safety Report 19836797 (Version 1)
Quarter: 2021Q3

REPORT INFORMATION
  Report Type: Spontaneous
  Country: BR (occurrence: BR)
  Receive Date: 20210914
  Receipt Date: 20210914
  Transmission Date: 20211014
  Serious: Yes (Hospitalization, Other)
  Sender: FDA-Public Use
  Company Number: NVSC2021BR207668

PATIENT
  Age: 27 Year
  Sex: Female

DRUGS (1)
  1. CATAFLAM [Suspect]
     Active Substance: DICLOFENAC POTASSIUM
     Indication: OROPHARYNGEAL PAIN
     Route: 065

REACTIONS (19)
  - Platelet count decreased [Unknown]
  - Drug hypersensitivity [Unknown]
  - Feeling abnormal [Unknown]
  - Loss of consciousness [Unknown]
  - Liver disorder [Unknown]
  - Contusion [Unknown]
  - Swelling face [Not Recovered/Not Resolved]
  - Eye swelling [Unknown]
  - Haemorrhage [Unknown]
  - Weight increased [Unknown]
  - Osteoporosis [Unknown]
  - Illness [Unknown]
  - Mouth swelling [Unknown]
  - Pyrexia [Unknown]
  - Blindness [Unknown]
  - Rash [Unknown]
  - Sensation of foreign body [Unknown]
  - Rash macular [Unknown]
  - Visual impairment [Unknown]
